FAERS Safety Report 13282372 (Version 1)
Quarter: 2017Q1

REPORT INFORMATION
  Report Type: Report from Study
  Country: TW (occurrence: TW)
  Receive Date: 20170301
  Receipt Date: 20170301
  Transmission Date: 20170428
  Serious: Yes (Death, Life-Threatening, Hospitalization)
  Sender: FDA-Public Use
  Company Number: TW-ASTELLAS-2015JP007008

PATIENT
  Age: 71 Year
  Sex: Male
  Weight: 55 kg

DRUGS (2)
  1. ENZALUTAMIDE [Suspect]
     Active Substance: ENZALUTAMIDE
     Indication: HORMONE-REFRACTORY PROSTATE CANCER
     Route: 048
     Dates: start: 20170208, end: 20170213
  2. PLACEBO [Suspect]
     Active Substance: UNSPECIFIED INGREDIENT
     Indication: HORMONE-REFRACTORY PROSTATE CANCER
     Dosage: PLACEBO, 160 MG, ONCE DAILY
     Route: 048
     Dates: start: 20140827, end: 20150311

REACTIONS (3)
  - Chemotherapy [Recovered/Resolved]
  - Hydrocephalus [Fatal]
  - Subarachnoid haemorrhage [Fatal]

NARRATIVE: CASE EVENT DATE: 20150325
